FAERS Safety Report 5575632-8 (Version None)
Quarter: 2007Q4

REPORT INFORMATION
  Report Type: 
  Country: None (occurrence: None)
  Receive Date: 20071130
  Receipt Date: 20070916
  Transmission Date: 20080405
  Serious: No
  Sender: FDA-Public Use
  Company Number: US200709003242

PATIENT
  Age: 68 Year
  Sex: Male
  Weight: 94.8 kg

DRUGS (6)
  1. BYETTA [Suspect]
     Indication: TYPE 2 DIABETES MELLITUS
     Dosage: 5 UG, 2/D, SUBCUTANEOUS
     Route: 058
     Dates: start: 20070907
  2. GLYBURIDE [Concomitant]
  3. MICRONASE [Concomitant]
  4. LIPITOR [Concomitant]
  5. CORGARD [Concomitant]
  6. ASPIRIN [Concomitant]

REACTIONS (6)
  - CELLULITIS [None]
  - ERUCTATION [None]
  - ERYTHEMA [None]
  - FLATULENCE [None]
  - JOINT SWELLING [None]
  - JOINT WARMTH [None]
